FAERS Safety Report 7613451-9 (Version None)
Quarter: 2011Q3

REPORT INFORMATION
  Report Type: 
  Country: None (occurrence: None)
  Receive Date: 20110708
  Receipt Date: 20110629
  Transmission Date: 20111222
  Serious: Yes (Other)
  Sender: FDA-Public Use
  Company Number: IT-ACCORD-009519

PATIENT
  Age: 37 Year
  Sex: Female

DRUGS (4)
  1. EVEROLIMUS(EVEROLIMUS) [Suspect]
     Indication: IMMUNOSUPPRESSION
  2. CYCLOSPORINE [Suspect]
     Indication: IMMUNOSUPPRESSION
  3. MYCOPHENOLATE MOFETIL [Suspect]
     Indication: IMMUNOSUPPRESSION
  4. CORTICOSTEROIDS(CORTICOSTEROIDS) [Suspect]
     Indication: IMMUNOSUPPRESSION

REACTIONS (3)
  - ADRENOCORTICAL CARCINOMA [None]
  - THYROID CANCER [None]
  - BODY TEMPERATURE INCREASED [None]
